FAERS Safety Report 4556648-7 (Version None)
Quarter: 2005Q1

REPORT INFORMATION
  Report Type: 
  Country: None (occurrence: None)
  Receive Date: 20041227
  Receipt Date: 20040826
  Transmission Date: 20050727
  Serious: Yes (Other)
  Sender: FDA-Public Use
  Company Number: US-JNJFOC-20040808932

PATIENT

DRUGS (4)
  1. REOPRO [Suspect]
     Indication: ANGINA UNSTABLE
     Dosage: INTRAVENOUS
     Route: 042
     Dates: start: 20040801
  2. INTEGRILIN [Suspect]
     Indication: DRUG USE FOR UNKNOWN INDICATION
     Dates: start: 20040801
  3. ASPIRIN [Concomitant]
  4. PLAVIX [Concomitant]

REACTIONS (1)
  - THROMBOCYTOPENIA [None]
